FAERS Safety Report 4940189-9 (Version None)
Quarter: 2006Q1

REPORT INFORMATION
  Report Type: 
  Country: None (occurrence: None)
  Receive Date: 20060310
  Receipt Date: 20060228
  Transmission Date: 20060701
  Serious: Yes (Hospitalization)
  Sender: FDA-Public Use
  Company Number: JP-ABBOTT-06P-087-0326357-00

PATIENT
  Sex: Male

DRUGS (2)
  1. SEVORANE LIQUID FOR INHALATION [Suspect]
     Indication: GENERAL ANAESTHESIA
     Route: 055
     Dates: start: 20060217, end: 20060217
  2. SUXAMETHONIUM CHLORIDE [Concomitant]
     Indication: MUSCLE RELAXANT THERAPY
     Route: 042
     Dates: start: 20060217, end: 20060217

REACTIONS (2)
  - MYOGLOBINURIA [None]
  - TRISMUS [None]
